FAERS Safety Report 5263063-X (Version None)
Quarter: 2007Q1

REPORT INFORMATION
  Report Type: 
  Country: None (occurrence: None)
  Receive Date: 20070312
  Receipt Date: 20070228
  Transmission Date: 20070707
  Serious: Yes (Hospitalization, Other)
  Sender: FDA-Public Use
  Company Number: US-PFIZER INC-2006022269

PATIENT
  Sex: Male

DRUGS (12)
  1. NEURONTIN [Suspect]
     Indication: DIABETIC NEUROPATHY
     Route: 048
  2. NEURONTIN [Suspect]
     Indication: RESTLESS LEGS SYNDROME
  3. NEURONTIN [Suspect]
     Indication: PAIN
  4. FIORINAL [Suspect]
  5. BENZODIAZEPINE DERIVATIVES [Suspect]
  6. RISPERIDONE [Concomitant]
  7. PAROXETINE HCL [Concomitant]
  8. TRAZODONE HCL [Concomitant]
  9. INSULIN [Concomitant]
  10. LORTAB [Concomitant]
     Indication: NEURALGIA
  11. VASOTEC [Concomitant]
  12. HYDROCHLOROTHIAZIDE [Concomitant]

REACTIONS (5)
  - DRUG INEFFECTIVE [None]
  - HOMICIDAL IDEATION [None]
  - MAJOR DEPRESSION [None]
  - OVERDOSE [None]
  - SUICIDE ATTEMPT [None]
